FAERS Safety Report 9030236 (Version 1)
Quarter: 2013Q1

REPORT INFORMATION
  Report Type: Report from Study
  Country: NO (occurrence: NO)
  Receive Date: 20130122
  Receipt Date: 20130122
  Transmission Date: 20140127
  Serious: Yes (Hospitalization)
  Sender: FDA-Public Use
  Company Number: NO-BAXTER-2013BAX002267

PATIENT
  Age: 65 Year
  Sex: Female
  Weight: 65 kg

DRUGS (4)
  1. SENDOXAN 1000 MG PULVER TIL INJEKSJONSV?SKE, OPPL?SNING [Suspect]
     Indication: BREAST CANCER
     Dates: start: 20120118, end: 20120118
  2. BEVACIZUMAB [Suspect]
     Indication: BREAST CANCER
     Route: 042
     Dates: start: 20120118
  3. FLUOROURACIL [Suspect]
     Indication: BREAST CANCER
     Dates: start: 20120118, end: 20120118
  4. EPIRUBICIN [Suspect]
     Indication: BREAST CANCER
     Dates: start: 20120118, end: 20120118

REACTIONS (3)
  - Neutropenic infection [Recovered/Resolved]
  - Abscess intestinal [Recovered/Resolved]
  - Neutropenic infection [Recovered/Resolved]
